FAERS Safety Report 12120423 (Version 1)
Quarter: 2016Q1

REPORT INFORMATION
  Report Type: Spontaneous
  Country: DE (occurrence: DE)
  Receive Date: 20160226
  Receipt Date: 20160226
  Transmission Date: 20160526
  Serious: Yes (Hospitalization, Other)
  Sender: FDA-Public Use
  Company Number: DE-TEVA-636247GER

PATIENT
  Sex: Female

DRUGS (1)
  1. COPAXONE [Suspect]
     Active Substance: GLATIRAMER ACETATE
     Indication: MULTIPLE SCLEROSIS
     Dates: start: 201601

REACTIONS (11)
  - Anaphylactic shock [Recovered/Resolved]
  - Injection site nodule [Recovered/Resolved]
  - Limb discomfort [Recovered/Resolved]
  - Groin pain [Recovered/Resolved]
  - Choking sensation [Recovered/Resolved]
  - Movement disorder [Recovered/Resolved]
  - Flushing [Recovered/Resolved]
  - Swelling face [Recovered/Resolved]
  - Sensory disturbance [Recovered/Resolved]
  - Pallor [Recovered/Resolved]
  - Injection site pain [Recovered/Resolved]

NARRATIVE: CASE EVENT DATE: 2016
